FAERS Safety Report 15566110 (Version 5)
Quarter: 2018Q4

REPORT INFORMATION
  Report Type: Report from Study
  Country: US (occurrence: US)
  Receive Date: 20181030
  Receipt Date: 20181207
  Transmission Date: 20190205
  Serious: Yes (Hospitalization, Other)
  Sender: FDA-Public Use
  Company Number: US-MYLANLABS-2018M1081781

PATIENT
  Age: 50 Year
  Sex: Female
  Weight: 61.2 kg

DRUGS (6)
  1. BUPROPION HYDROCHLORIDE XL [Concomitant]
     Active Substance: BUPROPION HYDROCHLORIDE
     Indication: PRODUCT USED FOR UNKNOWN INDICATION
     Dosage: UNK
  2. CLOZAPINE 201824 [Suspect]
     Active Substance: CLOZAPINE
     Dosage: 100 MILLIGRAM, QD
     Route: 048
     Dates: start: 20180911
  3. LITHIUM. [Concomitant]
     Active Substance: LITHIUM
     Indication: PRODUCT USED FOR UNKNOWN INDICATION
     Dosage: UNK
  4. CLOZAPINE 201824 [Suspect]
     Active Substance: CLOZAPINE
     Dosage: 200 MILLIGRAM, HS
     Route: 048
     Dates: start: 20180911, end: 20181025
  5. CLOZAPINE 201824 [Suspect]
     Active Substance: CLOZAPINE
     Indication: MAJOR DEPRESSION
     Dosage: 12.5 MILLIGRAM
     Route: 048
     Dates: start: 20180911
  6. CEFALEXIN [Concomitant]
     Active Substance: CEPHALEXIN
     Indication: PRODUCT USED FOR UNKNOWN INDICATION
     Dosage: UNK
     Dates: start: 20181023

REACTIONS (1)
  - Neutropenia [Recovering/Resolving]

NARRATIVE: CASE EVENT DATE: 20181025
